FAERS Safety Report 5894745-4 (Version None)
Quarter: 2008Q3

REPORT INFORMATION
  Report Type: 
  Country: None (occurrence: None)
  Receive Date: 20080924
  Receipt Date: 20080716
  Transmission Date: 20090109
  Serious: No
  Sender: FDA-Public Use
  Company Number: US-ASTRAZENECA-2008UW11630

PATIENT
  Age: 6200 Day
  Sex: Female
  Weight: 75 kg

DRUGS (2)
  1. SEROQUEL [Suspect]
     Dosage: 0.25 MG ONE QUARTER TABLET AT BEDTIME AS NEEDED
     Route: 048
     Dates: start: 20080204, end: 20080331
  2. VYVANSE [Suspect]
     Indication: ATTENTION DEFICIT/HYPERACTIVITY DISORDER
     Route: 048
     Dates: start: 20080215, end: 20080331

REACTIONS (6)
  - ANGER [None]
  - ATRIOVENTRICULAR BLOCK FIRST DEGREE [None]
  - CHEST PAIN [None]
  - FEELING ABNORMAL [None]
  - HYPERSOMNIA [None]
  - INSOMNIA [None]
